FAERS Safety Report 4913803-1 (Version None)
Quarter: 2006Q1

REPORT INFORMATION
  Report Type: 
  Country: None (occurrence: None)
  Receive Date: 20060216
  Receipt Date: 20050706
  Transmission Date: 20060701
  Serious: Yes (Hospitalization)
  Sender: FDA-Public Use
  Company Number: 200511795EU

PATIENT
  Age: 68 Year
  Sex: Female

DRUGS (17)
  1. ENOXAPARIN SODIUM [Suspect]
     Indication: DEEP VEIN THROMBOSIS
     Route: 058
     Dates: start: 20050517, end: 20050523
  2. WARFARIN [Suspect]
     Indication: DEEP VEIN THROMBOSIS
     Route: 048
     Dates: start: 20050517, end: 20050520
  3. WARFARIN [Suspect]
     Route: 048
     Dates: start: 20050521, end: 20050522
  4. WARFARIN [Suspect]
     Route: 048
     Dates: start: 20050523, end: 20050525
  5. WARFARIN [Suspect]
     Route: 048
     Dates: start: 20050526, end: 20050526
  6. WARFARIN [Suspect]
     Route: 048
     Dates: start: 20050527, end: 20050529
  7. ASPIRIN [Concomitant]
     Dates: start: 20050511, end: 20050519
  8. SIMVASTATIN [Concomitant]
     Dates: start: 20020712
  9. ATENOLOL [Concomitant]
     Dates: start: 20020614
  10. OMEPRAZOLE [Concomitant]
     Dates: start: 20010412
  11. CODEINE PHOSPHATE [Concomitant]
     Dates: start: 20050528, end: 20050628
  12. ZOPICLONE [Concomitant]
     Route: 048
     Dates: start: 20050528
  13. AUGMENTIN '125' [Concomitant]
     Dates: start: 20050526, end: 20050528
  14. ACETAMINOPHEN [Concomitant]
     Dates: start: 20050515
  15. TRAMADOL [Concomitant]
     Dates: start: 20050515, end: 20050519
  16. CLOTRIMAZOLE [Concomitant]
     Dates: start: 20050525, end: 20050526
  17. FERROGRADUMET [Concomitant]
     Dates: start: 20050526, end: 20050618

REACTIONS (3)
  - ASPIRATION JOINT [None]
  - JOINT SWELLING [None]
  - POST PROCEDURAL COMPLICATION [None]
